FAERS Safety Report 18645396 (Version 2)
Quarter: 2020Q4

REPORT INFORMATION
  Report Type: Spontaneous
  Country: KR (occurrence: KR)
  Receive Date: 20201221
  Receipt Date: 20201223
  Transmission Date: 20210114
  Serious: Yes (Death, Other)
  Sender: FDA-Public Use
  Company Number: KR-GILEAD-2020-0509902

PATIENT
  Age: 91 Year
  Sex: Female
  Weight: 50 kg

DRUGS (17)
  1. NEOMEDICOUGH [Concomitant]
     Indication: COUGH
  2. TRIDOL [Concomitant]
     Active Substance: TRAMADOL HYDROCHLORIDE
     Indication: PYREXIA
  3. BEARSE [Concomitant]
     Active Substance: DIMETHICONE\PANCRELIPASE\URSODIOL
     Indication: DYSPEPSIA
  4. BISACODYL. [Concomitant]
     Active Substance: BISACODYL
  5. PLAKON [Concomitant]
     Indication: PRURITUS
  6. VASELINE [PARAFFIN SOFT] [Concomitant]
     Indication: LIP DRY
  7. COOL PAP JEIL [DICLOFENAC DIETHYLAMINE] [Concomitant]
     Indication: ARTHRALGIA
  8. CODAEWON FORTE [Concomitant]
     Indication: COUGH
  9. JW LEVOFLOXACIN [Concomitant]
  10. RINOEBASTEL [Concomitant]
     Indication: RHINORRHOEA
  11. TYLENOL [Concomitant]
     Active Substance: ACETAMINOPHEN
     Indication: HEADACHE
  12. PANTOLINE [Concomitant]
     Active Substance: PANTOPRAZOLE SODIUM
  13. TRIDOL [Concomitant]
     Active Substance: TRAMADOL HYDROCHLORIDE
     Indication: PAIN
  14. DEXAMETHASONE. [Concomitant]
     Active Substance: DEXAMETHASONE
  15. MACPERAN [Concomitant]
     Active Substance: METOCLOPRAMIDE HYDROCHLORIDE
     Indication: VOMITING
  16. SMOFKABIVEN [Concomitant]
     Active Substance: AMINO ACIDS\DEXTROSE\ELECTROLYTES NOS\SOYBEAN OIL
  17. VEKLURY [Suspect]
     Active Substance: REMDESIVIR
     Indication: COVID-19
     Dosage: 100 MG, UNK
     Route: 042
     Dates: start: 20201216, end: 20201217

REACTIONS (2)
  - Pneumonia viral [Unknown]
  - Pneumonia [Fatal]

NARRATIVE: CASE EVENT DATE: 20201216
